FAERS Safety Report 10182424 (Version 1)
Quarter: 2014Q2

REPORT INFORMATION
  Report Type: Spontaneous
  Country: US (occurrence: None)
  Receive Date: 20140519
  Receipt Date: 20140519
  Transmission Date: 20141212
  Serious: No
  Sender: FDA-Public Use
  Company Number: None

PATIENT
  Age: 68 Year
  Sex: Male
  Weight: 122.47 kg

DRUGS (1)
  1. BYETTA [Suspect]

REACTIONS (3)
  - Product quality issue [None]
  - Product label issue [None]
  - Device malfunction [None]
